FAERS Safety Report 7925774-4 (Version None)
Quarter: 2011Q4

REPORT INFORMATION
  Report Type: 
  Country: None (occurrence: None)
  Receive Date: 20111118
  Receipt Date: 20110412
  Transmission Date: 20120403
  Serious: No
  Sender: FDA-Public Use
  Company Number: US-AMGEN-USASP2011019618

PATIENT
  Age: 28 Year
  Sex: Male

DRUGS (1)
  1. ENBREL [Suspect]
     Indication: PSORIASIS
     Dosage: 50 MG, QD
     Dates: start: 20110201, end: 20110201

REACTIONS (2)
  - SINUS DISORDER [None]
  - NASOPHARYNGITIS [None]
